FAERS Safety Report 9120289 (Version 2)
Quarter: 2013Q1

REPORT INFORMATION
  Report Type: Spontaneous
  Country: IL (occurrence: IL)
  Receive Date: 20130226
  Receipt Date: 20130313
  Transmission Date: 20140127
  Serious: Yes (Other)
  Sender: FDA-Public Use
  Company Number: IL-JNJFOC-20130211199

PATIENT
  Age: 17 Year
  Sex: Male

DRUGS (2)
  1. REMICADE [Suspect]
     Indication: CROHN^S DISEASE
     Dosage: 250 OR 265 MG DOSE DILUTED IN A 250CC SALINE BAG
     Route: 042
  2. REMICADE [Suspect]
     Indication: CROHN^S DISEASE
     Dosage: SECOND INFUSION
     Route: 042

REACTIONS (5)
  - Hypertension [Recovering/Resolving]
  - Infusion related reaction [Recovering/Resolving]
  - Blood pressure systolic decreased [Recovered/Resolved]
  - Syncope [Recovered/Resolved]
  - Vomiting [Recovering/Resolving]
